FAERS Safety Report 23952736 (Version 1)
Quarter: 2024Q2

REPORT INFORMATION
  Report Type: Spontaneous
  Country: JP (occurrence: JP)
  Receive Date: 20240607
  Receipt Date: 20240607
  Transmission Date: 20240716
  Serious: Yes (Other)
  Sender: FDA-Public Use
  Company Number: JP-SMPA-2024SMP007948

PATIENT

DRUGS (4)
  1. LATUDA [Suspect]
     Active Substance: LURASIDONE HYDROCHLORIDE
     Indication: Product used for unknown indication
     Dosage: 40 MG, BID
     Route: 048
  2. UNSPECIFIED INGREDIENT [Concomitant]
     Active Substance: UNSPECIFIED INGREDIENT
     Dosage: UNK
     Route: 048
  3. BLOOD AND BLOOD FORMING ORGANS [Concomitant]
     Dosage: UNK
     Route: 048
  4. Antiallergic agents [Concomitant]
     Dosage: UNK
     Route: 048

REACTIONS (6)
  - Hallucination [Unknown]
  - Headache [Unknown]
  - Nausea [Unknown]
  - Nausea [Unknown]
  - Choking sensation [Unknown]
  - Off label use [Unknown]
